FAERS Safety Report 7573065-6 (Version None)
Quarter: 2011Q2

REPORT INFORMATION
  Report Type: 
  Country: None (occurrence: None)
  Receive Date: 20110627
  Receipt Date: 20110616
  Transmission Date: 20111010
  Serious: Yes (Hospitalization)
  Sender: FDA-Public Use
  Company Number: NL-SANOFI-AVENTIS-2011SA038818

PATIENT
  Age: 75 Year
  Sex: Male

DRUGS (3)
  1. CABAZITAXEL [Suspect]
     Indication: PROSTATE CANCER
     Route: 042
  2. BUDESONIDE [Suspect]
     Indication: PROSTATE CANCER
  3. PREDNISONE [Suspect]
     Indication: PROSTATE CANCER

REACTIONS (2)
  - HAEMATOCHEZIA [None]
  - DIARRHOEA [None]
